FAERS Safety Report 5827580-3 (Version None)
Quarter: 2008Q3

REPORT INFORMATION
  Report Type: 
  Country: None (occurrence: None)
  Receive Date: 20080730
  Receipt Date: 20080728
  Transmission Date: 20090109
  Serious: Yes (Other)
  Sender: FDA-Public Use
  Company Number: US-BOEHRINGER INGELHEIM GMBH, GERMANY-2008-BP-11893BP

PATIENT

DRUGS (1)
  1. SPIRIVA [Suspect]

REACTIONS (2)
  - ANGIOEDEMA [None]
  - LIP SWELLING [None]
